FAERS Safety Report 8243792-6 (Version None)
Quarter: 2012Q1

REPORT INFORMATION
  Report Type: 
  Country: None (occurrence: None)
  Receive Date: 20120329
  Receipt Date: 20111110
  Transmission Date: 20120608
  Serious: No
  Sender: FDA-Public Use
  Company Number: US-MYLANLABS-2011S1023532

PATIENT
  Sex: Male

DRUGS (1)
  1. EMSAM [Suspect]
     Route: 062

REACTIONS (1)
  - DRUG SCREEN FALSE POSITIVE [None]
